FAERS Safety Report 19986547 (Version 1)
Quarter: 2021Q4

REPORT INFORMATION
  Report Type: Spontaneous
  Country: CN (occurrence: CN)
  Receive Date: 20211022
  Receipt Date: 20211022
  Transmission Date: 20220303
  Serious: Yes (Hospitalization)
  Sender: FDA-Public Use
  Company Number: CN-ELI_LILLY_AND_COMPANY-CN202110005053

PATIENT
  Age: 44 Year
  Sex: Male
  Weight: 75 kg

DRUGS (2)
  1. HUMALOG MIX75/25 [Suspect]
     Active Substance: INSULIN LISPRO
     Indication: Diabetes mellitus
     Dosage: 20 U, EACH MORNING
     Route: 058
     Dates: start: 20191001, end: 20211003
  2. METFORMIN HYDROCHLORIDE [Suspect]
     Active Substance: METFORMIN HYDROCHLORIDE
     Indication: Diabetes mellitus
     Dosage: 0.5 G, DAILY
     Route: 048
     Dates: start: 20191001, end: 20211002

REACTIONS (12)
  - Hypoglycaemic coma [Recovered/Resolved]
  - Lung opacity [Unknown]
  - Mental disorder [Unknown]
  - Neutrophil count increased [Unknown]
  - Agitation [Not Recovered/Not Resolved]
  - Breath sounds abnormal [Unknown]
  - Blood gases abnormal [Unknown]
  - Blood creatine phosphokinase increased [Unknown]
  - Sinusitis [Unknown]
  - Pulmonary mass [Unknown]
  - Diabetes mellitus [Unknown]
  - Anal incontinence [Unknown]

NARRATIVE: CASE EVENT DATE: 20211003
